FAERS Safety Report 6025390-8 (Version None)
Quarter: 2008Q4

REPORT INFORMATION
  Report Type: 
  Country: None (occurrence: None)
  Receive Date: 20081229
  Receipt Date: 20081229
  Transmission Date: 20090506
  Serious: No
  Sender: FDA-Public Use
  Company Number: None

PATIENT
  Age: 65 Year
  Sex: Female
  Weight: 61.2356 kg

DRUGS (1)
  1. FORTICAL [Suspect]
     Indication: BONE DISORDER
     Dosage: 1 SPRAY EACH DAY NASAL
     Route: 045
     Dates: start: 20080405, end: 20080704

REACTIONS (4)
  - BURNING SENSATION [None]
  - EAR DISCOMFORT [None]
  - EAR PAIN [None]
  - FACIAL PAIN [None]
